FAERS Safety Report 13184661 (Version 1)
Quarter: 2017Q1

REPORT INFORMATION
  Report Type: Spontaneous
  Country: CN (occurrence: CN)
  Receive Date: 20170203
  Receipt Date: 20170203
  Transmission Date: 20170428
  Serious: Yes (Other)
  Sender: FDA-Public Use
  Company Number: CN-MYLANLABS-2017M1005881

PATIENT

DRUGS (1)
  1. WARFARIN [Suspect]
     Active Substance: WARFARIN
     Indication: DEEP VEIN THROMBOSIS
     Dosage: 3MG/DAY
     Route: 048

REACTIONS (4)
  - Mediastinal haematoma [Recovered/Resolved]
  - Aneurysm ruptured [Recovered/Resolved]
  - Haemothorax [Recovered/Resolved]
  - Mediastinal haemorrhage [Recovered/Resolved]
